FAERS Safety Report 9139020 (Version 1)
Quarter: 2013Q1

REPORT INFORMATION
  Report Type: Spontaneous
  Country: US (occurrence: US)
  Receive Date: 20130305
  Receipt Date: 20130305
  Transmission Date: 20140127
  Serious: Yes (Other)
  Sender: FDA-Public Use
  Company Number: US-BRISTOL-MYERS SQUIBB COMPANY-17409475

PATIENT
  Sex: 0

DRUGS (2)
  1. REYATAZ [Suspect]
  2. RITONAVIR [Suspect]

REACTIONS (2)
  - Drug resistance [Unknown]
  - Treatment noncompliance [Unknown]
